FAERS Safety Report 9815027 (Version 1)
Quarter: 2014Q1

REPORT INFORMATION
  Report Type: Spontaneous
  Country: US (occurrence: US)
  Receive Date: 20140114
  Receipt Date: 20140114
  Transmission Date: 20141002
  Serious: No
  Sender: FDA-Public Use
  Company Number: US-009507513-1401USA002971

PATIENT
  Age: 28 Year
  Sex: Female

DRUGS (4)
  1. RALTEGRAVIR POTASSIUM [Suspect]
     Dosage: TOTAL DAILY DOSE 800 (COURSE NUMBER 1)
     Route: 048
  2. EMTRICITABINE (+) TENOFOVIR DISOPROXIL FUMARATE [Suspect]
     Dosage: COURSE NUMBER 1, TOTAL DAILY DOSE 1
     Route: 048
  3. ZIDOVUDINE [Suspect]
     Dosage: COURSE NUMBER 2, TOTAL DAILY DOSE 1
     Route: 042
  4. ZIDOVUDINE [Suspect]
     Dosage: COURSE NUMBER 1, TOTAL DAILY DOSE 2
     Route: 042

REACTIONS (1)
  - Exposure during pregnancy [Unknown]
